FAERS Safety Report 4926445-9 (Version None)
Quarter: 2006Q1

REPORT INFORMATION
  Report Type: 
  Country: None (occurrence: None)
  Receive Date: 20060228
  Receipt Date: 20051128
  Transmission Date: 20060701
  Serious: No
  Sender: FDA-Public Use
  Company Number: US-GLAXOSMITHKLINE-A0583674A

PATIENT
  Age: 48 Year
  Sex: Female
  Weight: 68.2 kg

DRUGS (4)
  1. LAMICTAL [Suspect]
     Indication: BIPOLAR DISORDER
     Dosage: 200MG PER DAY
     Route: 048
  2. SEROQUEL [Concomitant]
  3. AMBIEN [Concomitant]
  4. CLONAZEPAM [Concomitant]

REACTIONS (2)
  - RASH [None]
  - RASH PRURITIC [None]
